FAERS Safety Report 9044925 (Version 1)
Quarter: 2013Q1

REPORT INFORMATION
  Report Type: Report from Study
  Country: JP (occurrence: JP)
  Receive Date: 20130130
  Receipt Date: 20130130
  Transmission Date: 20140127
  Serious: Yes (Other)
  Sender: FDA-Public Use
  Company Number: JP-GLAXOSMITHKLINE-B0860865A

PATIENT
  Age: 42 None
  Sex: Male
  Weight: 89 kg

DRUGS (9)
  1. REVOLADE [Suspect]
     Indication: IDIOPATHIC THROMBOCYTOPENIC PURPURA
     Dosage: 12.5MG PER DAY
     Route: 048
     Dates: start: 20110519, end: 20110614
  2. PREDONINE [Concomitant]
     Indication: IDIOPATHIC THROMBOCYTOPENIC PURPURA
     Dosage: 5MG PER DAY
     Route: 048
     Dates: start: 20061122
  3. CEPHARANTHINE [Concomitant]
     Indication: IDIOPATHIC THROMBOCYTOPENIC PURPURA
     Dosage: 2MG TWICE PER DAY
     Route: 048
     Dates: start: 20061122
  4. OLMETEC [Concomitant]
     Dosage: 40MG PER DAY
     Route: 048
     Dates: start: 20090917
  5. AMLODIPINE [Concomitant]
     Dosage: 5MG PER DAY
     Route: 048
     Dates: start: 20090917
  6. URSO [Concomitant]
     Dosage: 300MG PER DAY
     Route: 048
     Dates: start: 20061122
  7. ADONA (AC-17) [Concomitant]
     Indication: IDIOPATHIC THROMBOCYTOPENIC PURPURA
     Dosage: 60MG PER DAY
     Route: 048
     Dates: start: 20061122
  8. MUCOSTA [Concomitant]
     Indication: GASTRIC ULCER
     Dosage: 300MG PER DAY
     Route: 048
     Dates: start: 20061122
  9. TAIPROTON [Concomitant]
     Indication: GASTRIC ULCER
     Dosage: 15MG PER DAY
     Route: 048
     Dates: start: 20110111

REACTIONS (2)
  - Haemorrhage subcutaneous [Recovering/Resolving]
  - Glucose urine present [Recovering/Resolving]
